FAERS Safety Report 23814424 (Version 1)
Quarter: 2024Q2

REPORT INFORMATION
  Report Type: Spontaneous
  Country: US (occurrence: None)
  Receive Date: 20240502
  Receipt Date: 20240502
  Transmission Date: 20240716
  Serious: Yes (Hospitalization)
  Sender: FDA-Public Use
  Company Number: None

PATIENT
  Sex: Male

DRUGS (2)
  1. PIRFENIDONE [Suspect]
     Active Substance: PIRFENIDONE
     Indication: Idiopathic pulmonary fibrosis
     Dosage: OTHER FREQUENCY : 3 TIMES DAY W/MEAL;?
     Route: 048
     Dates: start: 20230907
  2. TYLENOL [Concomitant]

REACTIONS (1)
  - Renal cancer [None]
